FAERS Safety Report 8380446-X (Version None)
Quarter: 2012Q2

REPORT INFORMATION
  Report Type: 
  Country: None (occurrence: None)
  Receive Date: 20120523
  Receipt Date: 20120518
  Transmission Date: 20120825
  Serious: Yes (Hospitalization)
  Sender: FDA-Public Use
  Company Number: US-GLAXOSMITHKLINE-A0972406A

PATIENT
  Age: 67 Year
  Sex: Male

DRUGS (1)
  1. FLOLAN [Suspect]
     Indication: COR PULMONALE CHRONIC
     Dosage: 26.5NGKM PER DAY
     Route: 042
     Dates: start: 20111005

REACTIONS (3)
  - ASCITES [None]
  - DYSPNOEA [None]
  - HEPATIC INFECTION [None]
